FAERS Safety Report 15325840 (Version 1)
Quarter: 2018Q3

REPORT INFORMATION
  Report Type: Spontaneous
  Country: US (occurrence: US)
  Receive Date: 20180822
  Receipt Date: 20180822
  Transmission Date: 20181010
  Serious: Yes (Hospitalization, Disabling)
  Sender: FDA-Public Use
  Company Number: None

PATIENT
  Age: 48 Year
  Sex: Female
  Weight: 47.63 kg

DRUGS (4)
  1. HYDROCODONE [Concomitant]
     Active Substance: HYDROCODONE
  2. ZOMIG [Concomitant]
     Active Substance: ZOLMITRIPTAN
  3. FROVATRIPTAN. [Concomitant]
     Active Substance: FROVATRIPTAN
  4. PARAGARD T 380A [Suspect]
     Active Substance: COPPER
     Dates: start: 20061206, end: 20161206

REACTIONS (7)
  - Panic attack [None]
  - Fatigue [None]
  - Hair metal test abnormal [None]
  - Device toxicity [None]
  - Premenstrual syndrome [None]
  - Migraine [None]
  - Alopecia [None]

NARRATIVE: CASE EVENT DATE: 20140606
